APPROVED DRUG PRODUCT: COMETRIQ
Active Ingredient: CABOZANTINIB S-MALATE
Strength: EQ 20MG BASE
Dosage Form/Route: CAPSULE;ORAL
Application: N203756 | Product #001
Applicant: EXELIXIS INC
Approved: Nov 29, 2012 | RLD: Yes | RS: No | Type: RX

PATENTS:
Patent 8877776 | Expires: Oct 8, 2030
Patent 12128039 | Expires: Feb 10, 2032
Patent 11098015 | Expires: Jan 15, 2030
Patent 11091440 | Expires: Jan 15, 2030
Patent 11298349 | Expires: Feb 10, 2032
Patent 11091439 | Expires: Jan 15, 2030
Patent 7579473 | Expires: Aug 14, 2026
Patent 9717720 | Expires: Feb 10, 2032